FAERS Safety Report 15190613 (Version 2)
Quarter: 2018Q3

REPORT INFORMATION
  Report Type: Spontaneous
  Country: US (occurrence: US)
  Receive Date: 20180724
  Receipt Date: 20180808
  Transmission Date: 20181010
  Serious: Yes (Hospitalization)
  Sender: FDA-Public Use
  Company Number: US-CELGENEUS-USA-20180704531

PATIENT
  Age: 75 Year
  Sex: Male
  Weight: 109.41 kg

DRUGS (41)
  1. BENADRYL [Concomitant]
     Active Substance: DIPHENHYDRAMINE HYDROCHLORIDE
     Indication: PRURITUS
     Route: 048
     Dates: start: 20180220
  2. VIDAZA [Suspect]
     Active Substance: AZACITIDINE
     Indication: ACUTE MYELOID LEUKAEMIA
     Dosage: 75 MILLIGRAM/SQ. METER
     Route: 058
     Dates: start: 20180213, end: 20180606
  3. SENOKOT [Concomitant]
     Active Substance: SENNOSIDES
     Indication: CONSTIPATION PROPHYLAXIS
     Route: 048
     Dates: start: 20180325
  4. LASIX [Concomitant]
     Active Substance: FUROSEMIDE
     Indication: TESTICULAR DISORDER
     Dosage: 40 MILLIGRAM
     Route: 048
     Dates: start: 20180514
  5. NORCO [Concomitant]
     Active Substance: ACETAMINOPHEN\HYDROCODONE BITARTRATE
     Indication: ARTHRALGIA
  6. HYDROCODONE [Concomitant]
     Active Substance: HYDROCODONE
     Indication: PLEURAL EFFUSION
     Dosage: 10 MILLILITER
     Route: 041
     Dates: start: 20180625
  7. HYDROCODONE [Concomitant]
     Active Substance: HYDROCODONE
     Indication: ABDOMINAL PAIN
  8. HYDROCODONE [Concomitant]
     Active Substance: HYDROCODONE
     Indication: CHEST PAIN
  9. LEVOFLOXACIN. [Concomitant]
     Active Substance: LEVOFLOXACIN
     Indication: VIRAL INFECTION
     Dosage: 500 MILLIGRAM
     Route: 048
     Dates: start: 20180203, end: 20180710
  10. ZOFRAN [Concomitant]
     Active Substance: ONDANSETRON HYDROCHLORIDE
     Indication: VOMITING
     Route: 048
     Dates: start: 20180219
  11. NORMAL SALINE [Concomitant]
     Active Substance: SODIUM CHLORIDE
     Route: 041
     Dates: start: 20180503, end: 20180510
  12. POTASSIUM CHLORIDE ER [Concomitant]
     Active Substance: POTASSIUM CHLORIDE
     Indication: BLOOD POTASSIUM DECREASED
     Dosage: 40 MILLIEQUIVALENTS
     Route: 048
     Dates: start: 20180209, end: 20180306
  13. TERAZOSIN [Concomitant]
     Active Substance: TERAZOSIN\TERAZOSIN HYDROCHLORIDE
     Indication: HYPERTENSION
     Dosage: 10 MILLIGRAM
     Route: 048
     Dates: start: 20180503, end: 20180510
  14. TRAMADOL. [Concomitant]
     Active Substance: TRAMADOL
     Indication: PAIN PROPHYLAXIS
     Route: 048
     Dates: start: 20180430, end: 20180505
  15. SENNA [Concomitant]
     Active Substance: SENNA LEAF\SENNOSIDES\SENNOSIDES A AND B
     Indication: CONSTIPATION
     Dosage: 34.4 MILLIGRAM
     Route: 048
     Dates: start: 20180628
  16. LISINOPRIL/HCT [Concomitant]
     Indication: HYPERTENSION
     Dosage: 20/12/5 MILLIGRAM
     Route: 048
     Dates: start: 20180207, end: 20180710
  17. SAW PALMETTO [Concomitant]
     Active Substance: HERBALS\SAW PALMETTO
     Indication: SUPPLEMENTATION THERAPY
     Dosage: 500 MILLIGRAM
     Route: 048
     Dates: start: 20180209, end: 20180710
  18. ACYCLOVIR. [Concomitant]
     Active Substance: ACYCLOVIR
     Indication: PROPHYLAXIS
  19. ZOFRAN [Concomitant]
     Active Substance: ONDANSETRON HYDROCHLORIDE
     Indication: NAUSEA
  20. TERAZOSIN [Concomitant]
     Active Substance: TERAZOSIN\TERAZOSIN HYDROCHLORIDE
     Dosage: 10 MILLIGRAM
     Route: 048
     Dates: start: 20180625
  21. VENETOCLAX. [Concomitant]
     Active Substance: VENETOCLAX
     Indication: ACUTE MYELOID LEUKAEMIA
     Route: 065
  22. DOXAZOSIN [Concomitant]
     Active Substance: DOXAZOSIN\DOXAZOSIN MESYLATE
     Indication: HYPERTENSION
     Dosage: 8 MILLIGRAM
     Route: 048
     Dates: start: 20180207, end: 20180710
  23. FLUCONAZOLE. [Concomitant]
     Active Substance: FLUCONAZOLE
     Indication: PROPHYLAXIS
     Dosage: 100 MILLIGRAM
     Route: 048
     Dates: start: 20180503
  24. MEROPENEM TRIHYDRATE [Concomitant]
     Active Substance: MEROPENEM
     Indication: PNEUMONIA
     Route: 041
     Dates: start: 20180502, end: 20180502
  25. NORMAL SALINE [Concomitant]
     Active Substance: SODIUM CHLORIDE
     Indication: TUMOUR LYSIS SYNDROME
     Route: 041
     Dates: start: 20180213, end: 20180218
  26. K PHOS NEUTRAL [Concomitant]
     Active Substance: POTASSIUM PHOSPHATE, MONOBASIC\SODIUM PHOSPHATE, DIBASIC, ANHYDROUS\SODIUM PHOSPHATE, MONOBASIC, MONOHYDRATE
     Indication: BLOOD PHOSPHORUS DECREASED
     Dosage: 500 MILLIGRAM
     Route: 048
     Dates: start: 20180209, end: 20180219
  27. MEPHYTON [Concomitant]
     Active Substance: PHYTONADIONE
     Indication: PROTHROMBIN TIME PROLONGED
  28. MORPHINE [Concomitant]
     Active Substance: MORPHINE
     Indication: PLEURAL EFFUSION
  29. FLUCONAZOLE. [Concomitant]
     Active Substance: FLUCONAZOLE
     Indication: VIRAL INFECTION
     Dosage: 100 MILLIGRAM
     Route: 048
     Dates: start: 20180203, end: 20180710
  30. MIRALAX [Concomitant]
     Active Substance: POLYETHYLENE GLYCOL 3350
     Indication: CONSTIPATION
     Route: 048
     Dates: start: 20180219
  31. MEROPENEM TRIHYDRATE [Concomitant]
     Active Substance: MEROPENEM
     Indication: FEBRILE NEUTROPENIA
     Dosage: 4 GRAM
     Route: 041
     Dates: start: 20180503, end: 20180511
  32. MORPHINE [Concomitant]
     Active Substance: MORPHINE
     Indication: CHEST PAIN
     Dosage: 4 MILLIGRAM
     Route: 041
     Dates: start: 20180625
  33. MORPHINE [Concomitant]
     Active Substance: MORPHINE
     Indication: ABDOMINAL PAIN
  34. ACYCLOVIR. [Concomitant]
     Active Substance: ACYCLOVIR
     Indication: VIRAL INFECTION
     Dosage: 800 MILLIGRAM
     Route: 048
     Dates: start: 20180203, end: 20180710
  35. LEVOFLOXACIN. [Concomitant]
     Active Substance: LEVOFLOXACIN
     Indication: PROPHYLAXIS
  36. NORMAL SALINE [Concomitant]
     Active Substance: SODIUM CHLORIDE
     Dosage: 500 MILLILITER
     Route: 041
     Dates: start: 20180502, end: 20180502
  37. ADVIL [Concomitant]
     Active Substance: IBUPROFEN
     Indication: ARTHRITIS
     Route: 048
     Dates: start: 20180308
  38. MEPHYTON [Concomitant]
     Active Substance: PHYTONADIONE
     Indication: INTERNATIONAL NORMALISED RATIO INCREASED
     Dosage: 5 MILLIGRAM
     Route: 048
     Dates: start: 20180209, end: 20180212
  39. NORCO [Concomitant]
     Active Substance: ACETAMINOPHEN\HYDROCODONE BITARTRATE
     Indication: FEBRILE NEUTROPENIA
     Route: 048
     Dates: start: 20180502, end: 20180511
  40. DIFLUCAN [Concomitant]
     Active Substance: FLUCONAZOLE
     Indication: FEBRILE NEUTROPENIA
     Dosage: 100 MILLIGRAM
     Route: 048
     Dates: start: 20180503, end: 20180710
  41. PANTOPRAZOLE [Concomitant]
     Active Substance: PANTOPRAZOLE
     Indication: GASTROOESOPHAGEAL REFLUX DISEASE
     Dosage: 40 MILLIGRAM
     Route: 048
     Dates: start: 20180628

REACTIONS (4)
  - Pleural effusion [Not Recovered/Not Resolved]
  - Dyspnoea [Not Recovered/Not Resolved]
  - Pneumonia [Not Recovered/Not Resolved]
  - Chest discomfort [Not Recovered/Not Resolved]

NARRATIVE: CASE EVENT DATE: 20180625
